FAERS Safety Report 14873086 (Version 7)
Quarter: 2019Q2

REPORT INFORMATION
  Report Type: Report from Study
  Country: RU (occurrence: RU)
  Receive Date: 20180510
  Receipt Date: 20190510
  Transmission Date: 20190711
  Serious: Yes (Life-Threatening, Hospitalization, Other)
  Sender: FDA-Public Use
  Company Number: RU-ROCHE-2119807

PATIENT
  Age: 60 Year
  Sex: Female
  Weight: 70 kg

DRUGS (10)
  1. PRESTARIUM [PERINDOPRIL] [Concomitant]
     Route: 048
     Dates: start: 20180522
  2. ATEZOLIZUMAB. [Suspect]
     Active Substance: ATEZOLIZUMAB
     Indication: MALIGNANT MELANOMA
     Dosage: MOST RECENT DOSE 16/APR/2018 (840 MG)
     Route: 042
     Dates: start: 20180416
  3. COBIMETINIB. [Suspect]
     Active Substance: COBIMETINIB
     Indication: MALIGNANT MELANOMA
     Dosage: MOST RECENT DOSE WAS ON 30/APR/2018: 60 MG
     Route: 048
     Dates: start: 20180416
  4. INDAPAMIDE;PERINDOPRIL [Concomitant]
     Indication: HYPERTENSION
     Route: 048
  5. OMEPRAZOLE. [Concomitant]
     Active Substance: OMEPRAZOLE
     Dosage: PREVENTION OF COMPLICATIONS OF TAKING PREDNISONE
     Route: 042
     Dates: start: 20180505
  6. PREDUCTAL [Concomitant]
     Active Substance: TRIMETAZIDINE DIHYDROCHLORIDE
     Route: 048
     Dates: start: 20180522
  7. STEROFUNDIN ISOTONIC [Concomitant]
     Indication: HYPOKALAEMIA
     Route: 042
     Dates: start: 20180403, end: 20180407
  8. FRAGMIN [Concomitant]
     Active Substance: DALTEPARIN SODIUM
     Dosage: PREVENTION OF PULMONARY EMBOLISM
     Route: 058
     Dates: start: 20180503
  9. LAPPACONITINE HYDROBROMIDE [Concomitant]
     Route: 048
     Dates: start: 20180522
  10. POTASSIUM CHLORIDE. [Concomitant]
     Active Substance: POTASSIUM CHLORIDE
     Indication: HYPOKALAEMIA
     Route: 042
     Dates: start: 20180503, end: 20180507

REACTIONS (2)
  - Atrial fibrillation [Recovered/Resolved]
  - Rhabdomyolysis [Recovered/Resolved]

NARRATIVE: CASE EVENT DATE: 20180503
